FAERS Safety Report 16573792 (Version 1)
Quarter: 2019Q3

REPORT INFORMATION
  Report Type: Spontaneous
  Country: DE (occurrence: DE)
  Receive Date: 20190715
  Receipt Date: 20190715
  Transmission Date: 20191004
  Serious: Yes (Hospitalization)
  Sender: FDA-Public Use
  Company Number: DE-TEVA-2019-DE-1076632

PATIENT
  Age: 90 Year
  Sex: Male

DRUGS (9)
  1. SPASMOLYT [Concomitant]
     Dosage: 15 MG, 1-1-1, TABLET
     Route: 048
  2. METOPROLOL. [Concomitant]
     Active Substance: METOPROLOL
     Dosage: 47.5 MG, 1-0-0, TABLET
     Route: 048
  3. XARELTO [Concomitant]
     Active Substance: RIVAROXABAN
     Dosage: 15 MG, 0-0-1, TABLET
     Route: 048
  4. VIGANTOLETTEN 1000I.E. [Concomitant]
     Dosage: 1000 IE, 1-0-0, TABLET
     Route: 048
  5. AMLODIPIN [Concomitant]
     Active Substance: AMLODIPINE BESYLATE
     Dosage: 5 MG, 1-0-1, TABLET
     Route: 048
  6. FUROSEMIDE. [Suspect]
     Active Substance: FUROSEMIDE
     Dosage: 40 MG, 2-0-0, TABLET
     Route: 048
  7. SIMVASTATIN. [Concomitant]
     Active Substance: SIMVASTATIN
     Dosage: 20 MG, 0-0-1, TABLETTEN
     Route: 048
  8. CITALOPRAM [Concomitant]
     Active Substance: CITALOPRAM HYDROBROMIDE
     Dosage: 20 MG, 1-0-0, TABLET
     Route: 048
  9. PANTOPRAZOL [Concomitant]
     Active Substance: PANTOPRAZOLE SODIUM
     Dosage: 40 MG, 1-0-0, TABLET
     Route: 048

REACTIONS (3)
  - Fall [Unknown]
  - Hypokalaemia [Unknown]
  - Syncope [Unknown]
